FAERS Safety Report 7602207-9 (Version None)
Quarter: 2011Q3

REPORT INFORMATION
  Report Type: 
  Country: None (occurrence: None)
  Receive Date: 20110711
  Receipt Date: 20110630
  Transmission Date: 20111222
  Serious: Yes (Hospitalization, Other)
  Sender: FDA-Public Use
  Company Number: US-ASTRAZENECA-2011SE05272

PATIENT
  Age: 54 Year
  Sex: Male

DRUGS (2)
  1. CRESTOR [Suspect]
     Route: 048
  2. NEXIUM [Suspect]
     Route: 048

REACTIONS (5)
  - SURGERY [None]
  - POLYPECTOMY [None]
  - PHARYNGEAL DISORDER [None]
  - PRECANCEROUS CELLS PRESENT [None]
  - POLYP [None]
